FAERS Safety Report 9601036 (Version 2)
Quarter: 2013Q4

REPORT INFORMATION
  Report Type: Spontaneous
  Country: US (occurrence: US)
  Receive Date: 20131004
  Receipt Date: 20131004
  Transmission Date: 20140711
  Serious: No
  Sender: FDA-Public Use
  Company Number: US-AMGEN-USASP2013032465

PATIENT
  Age: 38 Year
  Sex: Female
  Weight: 54.88 kg

DRUGS (3)
  1. ENBREL [Suspect]
     Indication: PSORIASIS
     Dosage: 50 MG, 2 TIMES/WK
     Route: 058
  2. PREDNISONE [Concomitant]
     Dosage: UNK
  3. HUMIRA [Concomitant]
     Dosage: UNK

REACTIONS (5)
  - Somnolence [Unknown]
  - Drug ineffective [Unknown]
  - Dermatitis allergic [Unknown]
  - Sedation [Unknown]
  - Psoriasis [Unknown]
